FAERS Safety Report 8140965-8 (Version None)
Quarter: 2012Q1

REPORT INFORMATION
  Report Type: 
  Country: None (occurrence: None)
  Receive Date: 20120216
  Receipt Date: 20120208
  Transmission Date: 20120608
  Serious: Yes (Hospitalization)
  Sender: FDA-Public Use
  Company Number: PHHY2012NO004008

PATIENT
  Sex: Male

DRUGS (6)
  1. ATORVASTATIN [Concomitant]
     Dosage: 40 MG
  2. ACETYLSALICYLIC ACID SRT [Concomitant]
     Indication: CARDIOVASCULAR EVENT PROPHYLAXIS
     Dosage: 75 MG
  3. ACETYLCYSTEINE [Concomitant]
     Dosage: 600 MG
  4. BENDROFLUMETHIAZIDE [Concomitant]
     Dosage: 5 MG
  5. ESOMEPRAZOLE [Concomitant]
     Dosage: 20 MG
  6. CLOZAPINE [Suspect]
     Indication: SCHIZOPHRENIA, PARANOID TYPE
     Dosage: 400 MG

REACTIONS (24)
  - MUTISM [None]
  - AKATHISIA [None]
  - HYPERHIDROSIS [None]
  - DEPRESSED LEVEL OF CONSCIOUSNESS [None]
  - MUSCLE RIGIDITY [None]
  - DYSPHAGIA [None]
  - WHITE BLOOD CELL COUNT INCREASED [None]
  - BLOOD CREATINE PHOSPHOKINASE INCREASED [None]
  - AGITATION [None]
  - HYPOPHAGIA [None]
  - NEUTROPHIL COUNT INCREASED [None]
  - AKINESIA [None]
  - HYPERTENSION [None]
  - PYREXIA [None]
  - VIRAL INFECTION [None]
  - DEHYDRATION [None]
  - HYPERTHERMIA [None]
  - DELIRIUM TREMENS [None]
  - ALANINE AMINOTRANSFERASE INCREASED [None]
  - NEUROLEPTIC MALIGNANT SYNDROME [None]
  - URINARY INCONTINENCE [None]
  - PSYCHOTIC DISORDER [None]
  - HEART RATE INCREASED [None]
  - CONFUSIONAL STATE [None]
